FAERS Safety Report 17201669 (Version 1)
Quarter: 2020Q1

REPORT INFORMATION
  Report Type: Spontaneous
  Country: US (occurrence: US)
  Receive Date: 20191224
  Receipt Date: 20191224
  Transmission Date: 20200409
  Serious: Yes (Disabling, Other)
  Sender: FDA-Public Use
  Company Number: None

PATIENT
  Age: 54 Year
  Sex: Female
  Weight: 92.25 kg

DRUGS (22)
  1. TRIAMTERENE. [Concomitant]
     Active Substance: TRIAMTERENE
  2. PLACQUENIL [Concomitant]
  3. VENTOLIN [Concomitant]
     Active Substance: ALBUTEROL SULFATE
  4. PERIACTIN [Concomitant]
     Active Substance: CYPROHEPTADINE HYDROCHLORIDE
  5. AVEENO [Concomitant]
     Active Substance: DIMETHICONE\HOMOSALATE\OCTINOXATE\OCTISALATE\TITANIUM DIOXIDE
  6. BENADRYL [Concomitant]
     Active Substance: DIPHENHYDRAMINE HYDROCHLORIDE
  7. SARNA SENSITIVE LOTION [Concomitant]
  8. SINGULAIR [Concomitant]
     Active Substance: MONTELUKAST SODIUM
  9. CALCIUM WITH D [Concomitant]
     Active Substance: CALCIUM\VITAMIN D
  10. NORVASC [Concomitant]
     Active Substance: AMLODIPINE BESYLATE
  11. PROTONICS [Concomitant]
  12. HUMIRA [Suspect]
     Active Substance: ADALIMUMAB
     Indication: ANKYLOSING SPONDYLITIS
     Dosage: ?          QUANTITY:1 INJECTION(S);OTHER FREQUENCY:EVERY 2 WEEKS;OTHER ROUTE:INJECTION?
     Dates: start: 20191002, end: 20191113
  13. TRAZODONE [Concomitant]
     Active Substance: TRAZODONE HYDROCHLORIDE
  14. MULTI VIT [Concomitant]
     Active Substance: VITAMINS
  15. CERAV ITCH CREAM [Concomitant]
  16. ADVAIR HFA [Concomitant]
     Active Substance: FLUTICASONE PROPIONATE\SALMETEROL XINAFOATE
  17. BETA METHASONE CR [Concomitant]
  18. RAYOS [Concomitant]
     Active Substance: PREDNISONE
  19. VITAMIN C [Concomitant]
     Active Substance: ASCORBIC ACID
  20. EUCERIN ECZEMA BABY/ADULT CREAM [Concomitant]
  21. TRIAMCINALONE CR [Concomitant]
  22. SARNA ORIGINAL [Concomitant]

REACTIONS (3)
  - Drug ineffective [None]
  - Rash pruritic [None]
  - Rash [None]

NARRATIVE: CASE EVENT DATE: 20191119
